FAERS Safety Report 4828137-3 (Version None)
Quarter: 2005Q4

REPORT INFORMATION
  Report Type: 
  Country: None (occurrence: None)
  Receive Date: 20051110
  Receipt Date: 20051102
  Transmission Date: 20060501
  Serious: Yes (Life-Threatening, Hospitalization)
  Sender: FDA-Public Use
  Company Number: HQWYE357202NOV05

PATIENT
  Age: 27 Year
  Sex: Female

DRUGS (7)
  1. PANTO                     (PANTOPRAZOLE, INJECTION) [Suspect]
     Indication: GASTRIC ULCER
     Dosage: 8 MG 1X PER 1 HR; INTRAVENOUS
     Route: 042
     Dates: start: 20040816, end: 20050818
  2. PANTOLOC            (PANTOPRAZOLE DELAYED RELEASE) [Suspect]
     Indication: GASTRIC ULCER
     Dosage: 40 MG 2X PER 1 DAY; ORAL
     Route: 048
     Dates: start: 20040820, end: 20040822
  3. MORPHINE [Concomitant]
  4. DEXTROSE AND SODIUM CHLORIDE [Concomitant]
  5. GRAVOL TAB [Concomitant]
  6. ZANTAC [Concomitant]
  7. ATASOL (PARACETAMOL) [Concomitant]

REACTIONS (4)
  - EYE PAIN [None]
  - FEELING HOT [None]
  - HEADACHE [None]
  - HYPERTENSION [None]
